FAERS Safety Report 13300520 (Version 1)
Quarter: 2017Q1

REPORT INFORMATION
  Report Type: Spontaneous
  Country: US (occurrence: US)
  Receive Date: 20170307
  Receipt Date: 20170307
  Transmission Date: 20170428
  Serious: Yes (Hospitalization)
  Sender: FDA-Public Use
  Company Number: US-TEVA-655340USA

PATIENT
  Age: 77 Year
  Sex: Female

DRUGS (6)
  1. VOLTAREN [Suspect]
     Active Substance: DICLOFENAC SODIUM
     Indication: NECK PAIN
     Dosage: 8 GRAM DAILY;
     Route: 065
     Dates: start: 201603
  2. GABAPENTIN. [Suspect]
     Active Substance: GABAPENTIN
     Indication: NEURALGIA
     Route: 065
  3. VOLTAREN [Suspect]
     Active Substance: DICLOFENAC SODIUM
     Indication: ARTHRALGIA
     Route: 065
     Dates: start: 2012
  4. TEGRETOL [Suspect]
     Active Substance: CARBAMAZEPINE
     Route: 065
  5. VOLTAREN [Suspect]
     Active Substance: DICLOFENAC SODIUM
     Indication: MUSCULOSKELETAL PAIN
  6. VOLTAREN [Suspect]
     Active Substance: DICLOFENAC SODIUM
     Indication: BACK PAIN

REACTIONS (7)
  - Dysstasia [Recovered/Resolved]
  - Feeling abnormal [Recovered/Resolved]
  - Application site pain [Recovered/Resolved]
  - Pain in extremity [Unknown]
  - Hospitalisation [Recovered/Resolved]
  - Urticaria [Unknown]
  - Neck pain [Unknown]
